FAERS Safety Report 9244534 (Version 3)
Quarter: 2013Q3

REPORT INFORMATION
  Report Type: Report from Study
  Country: US (occurrence: US)
  Receive Date: 20130422
  Receipt Date: 20130821
  Transmission Date: 20140515
  Serious: Yes (Other)
  Sender: FDA-Public Use
  Company Number: PHEH2012US025829

PATIENT
  Age: 46 Year
  Sex: Female

DRUGS (1)
  1. EXTAVIA [Suspect]
     Indication: MULTIPLE SCLEROSIS
     Dosage: 0.25 MG, QOD
     Route: 058
     Dates: start: 20130303

REACTIONS (8)
  - Upper limb fracture [Recovering/Resolving]
  - Fall [Unknown]
  - Balance disorder [Unknown]
  - Exostosis [Not Recovered/Not Resolved]
  - Arthralgia [Unknown]
  - Injection site bruising [Recovering/Resolving]
  - Injection site discolouration [Recovering/Resolving]
  - Injection site vesicles [Recovering/Resolving]
